FAERS Safety Report 4521993-8 (Version None)
Quarter: 2004Q4

REPORT INFORMATION
  Report Type: 
  Country: None (occurrence: None)
  Receive Date: 20041206
  Receipt Date: 20041124
  Transmission Date: 20050328
  Serious: Yes (Hospitalization)
  Sender: FDA-Public Use
  Company Number: 2004UW24228

PATIENT
  Age: 25 Year
  Sex: Male

DRUGS (1)
  1. SEROQUEL [Suspect]

REACTIONS (1)
  - THROMBOTIC THROMBOCYTOPENIC PURPURA [None]
